FAERS Safety Report 6200164-3 (Version None)
Quarter: 2009Q2

REPORT INFORMATION
  Report Type: 
  Country: None (occurrence: None)
  Receive Date: 20090522
  Receipt Date: 20090515
  Transmission Date: 20091009
  Serious: Yes (Other)
  Sender: FDA-Public Use
  Company Number: US-JNJCH-2009013641

PATIENT
  Sex: Male

DRUGS (3)
  1. LUBRIDERM ADVANCED THERAPY MOISTURIZING [Suspect]
     Indication: DRY SKIN
     Dosage: TEXT:^ALL OVER HIS BODY^
     Route: 061
     Dates: start: 20090501, end: 20090514
  2. TRAMADOL HCL [Concomitant]
     Indication: PAIN
     Dosage: TEXT:87.5 MG UNSPECIFIED
     Route: 048
  3. ATENOLOL [Concomitant]
     Indication: HYPERTENSION
     Dosage: TEXT:12 MG UNSPECIFIED
     Route: 048

REACTIONS (3)
  - AGEUSIA [None]
  - HYPERSENSITIVITY [None]
  - NAUSEA [None]
